FAERS Safety Report 23403417 (Version 4)
Quarter: 2024Q2

REPORT INFORMATION
  Report Type: Spontaneous
  Country: US (occurrence: None)
  Receive Date: 20240116
  Receipt Date: 20240502
  Transmission Date: 20240716
  Serious: No
  Sender: FDA-Public Use
  Company Number: 2024A009408

PATIENT
  Age: 27892 Day
  Sex: Female

DRUGS (3)
  1. BYETTA [Suspect]
     Active Substance: EXENATIDE
  2. BYETTA [Suspect]
     Active Substance: EXENATIDE
     Dosage: 10 MCG PER DOSE, 2.4 ML PREFILLED PEN
  3. BYDUREON [Concomitant]
     Active Substance: EXENATIDE

REACTIONS (4)
  - Goitre [Unknown]
  - Stomach mass [Unknown]
  - Device malfunction [Unknown]
  - Insurance issue [Unknown]

NARRATIVE: CASE EVENT DATE: 20240111
